FAERS Safety Report 19195478 (Version 1)
Quarter: 2021Q2

REPORT INFORMATION
  Report Type: Report from Study
  Country: PK (occurrence: PK)
  Receive Date: 20210429
  Receipt Date: 20210429
  Transmission Date: 20210717
  Serious: Yes (Other)
  Sender: FDA-Public Use
  Company Number: PK-SUN PHARMACEUTICAL INDUSTRIES LTD-2021R1-293758

PATIENT
  Sex: Female

DRUGS (1)
  1. ASPIRIN. [Suspect]
     Active Substance: ASPIRIN
     Indication: PRODUCT USED FOR UNKNOWN INDICATION
     Dosage: 75 MG ONCE DAILY
     Route: 048

REACTIONS (2)
  - Antiphospholipid syndrome [Unknown]
  - Exposure during pregnancy [Unknown]
